FAERS Safety Report 4980450-5 (Version None)
Quarter: 2006Q2

REPORT INFORMATION
  Report Type: 
  Country: None (occurrence: None)
  Receive Date: 20060424
  Receipt Date: 20060419
  Transmission Date: 20061013
  Serious: Yes (Other)
  Sender: FDA-Public Use
  Company Number: DE-GLAXOSMITHKLINE-D0049455A

PATIENT
  Sex: Female

DRUGS (2)
  1. ARIXTRA [Suspect]
     Route: 058
  2. HEPARIN [Concomitant]
     Indication: THROMBOSIS
     Route: 065

REACTIONS (1)
  - HEPARIN-INDUCED THROMBOCYTOPENIA [None]
